FAERS Safety Report 4548059-5 (Version None)
Quarter: 2005Q1

REPORT INFORMATION
  Report Type: 
  Country: None (occurrence: None)
  Receive Date: 20050104
  Receipt Date: 20050104
  Transmission Date: 20050727
  Serious: Yes (Death)
  Sender: FDA-Public Use
  Company Number: None

PATIENT
  Age: 49 Year
  Sex: Female
  Weight: 54.4316 kg

DRUGS (1)
  1. TRIAZOLAM [Suspect]
     Indication: SLEEP DISORDER

REACTIONS (6)
  - ABNORMAL BEHAVIOUR [None]
  - COMPLETED SUICIDE [None]
  - HALLUCINATION [None]
  - OVERDOSE [None]
  - PYROMANIA [None]
  - THINKING ABNORMAL [None]
